FAERS Safety Report 7346400-1 (Version None)
Quarter: 2011Q1

REPORT INFORMATION
  Report Type: 
  Country: None (occurrence: None)
  Receive Date: 20110301
  Receipt Date: 20110214
  Transmission Date: 20110831
  Serious: Yes (Hospitalization, Other)
  Sender: FDA-Public Use
  Company Number: FK201100173

PATIENT
  Age: 65 Year
  Sex: Female

DRUGS (9)
  1. VANCOMYCIN HYDROCHLORIDE [Suspect]
     Indication: ANTIBIOTIC THERAPY
     Dosage: BID, INTRAVENOUS (NOT OTHERWISE SPECIFIED)
     Route: 042
  2. GENTAMICIN [Suspect]
     Indication: ANTIBIOTIC THERAPY
     Dosage: THREE TIMES DAILY
  3. PERINDOPRIL (PERINDOPRIL) [Concomitant]
  4. METOPROLOL (METOPROLOL) [Concomitant]
  5. CEFTOBIPROLE [Suspect]
     Indication: ANTIBIOTIC THERAPY
     Dosage: THREE TIMES DAILY, INTRAVENOUS (NOT OTHERWISE SPECIFIED)
     Route: 042
  6. DAPTOMYCIN [Concomitant]
  7. SULFAMETHOXAZOLE AND TRIMETHOPRIM [Concomitant]
  8. ACETYLSALICYLIC ACID (ACETYLSALICYLIC ACID) [Suspect]
     Indication: COAGULOPATHY
     Dosage: ONCE DAILY, ORAL
     Route: 048
  9. RIFAMPICIN [Suspect]
     Indication: ANTIBIOTIC THERAPY
     Dosage: DAILY, ORAL
     Route: 048

REACTIONS (10)
  - DRUG RASH WITH EOSINOPHILIA AND SYSTEMIC SYMPTOMS [None]
  - STAPHYLOCOCCUS TEST POSITIVE [None]
  - OSTEOMYELITIS [None]
  - MITRAL VALVE REPLACEMENT [None]
  - CARDIAC VALVE VEGETATION [None]
  - FEBRILE NEUTROPENIA [None]
  - ATRIOVENTRICULAR BLOCK COMPLETE [None]
  - POST PROCEDURAL COMPLICATION [None]
  - ENDOCARDITIS [None]
  - CORONARY ARTERY STENOSIS [None]
